FAERS Safety Report 5069272-7 (Version None)
Quarter: 2006Q3

REPORT INFORMATION
  Report Type: 
  Country: None (occurrence: None)
  Receive Date: 20060731
  Receipt Date: 20060719
  Transmission Date: 20061208
  Serious: Yes (Hospitalization, Other)
  Sender: FDA-Public Use
  Company Number: 2006089062

PATIENT
  Age: 44 Year
  Sex: Male
  Weight: 80.7403 kg

DRUGS (5)
  1. LIPITOR [Suspect]
     Indication: BLOOD CHOLESTEROL INCREASED
     Dosage: 10 MG (10 MG, 1 IN 1 D)
     Dates: start: 20050701
  2. ZOCOR [Concomitant]
  3. LOPRESSOR [Concomitant]
  4. ACETYLSALICYLIC ACID SRT [Concomitant]
  5. PHENYTOIN [Concomitant]

REACTIONS (2)
  - CARDIAC OPERATION [None]
  - CORONARY ARTERY BYPASS [None]
